FAERS Safety Report 13775334 (Version 1)
Quarter: 2017Q3

REPORT INFORMATION
  Report Type: Spontaneous
  Country: US (occurrence: US)
  Receive Date: 20170720
  Receipt Date: 20170720
  Transmission Date: 20171127
  Serious: No
  Sender: FDA-Public Use
  Company Number: US-MYLANLABS-2017M1013351

PATIENT
  Age: 74 Year
  Sex: Female

DRUGS (5)
  1. NORTHERA [Suspect]
     Active Substance: DROXIDOPA
     Dosage: 300 MG, TID
     Dates: start: 20161026
  2. PREDNISONE. [Suspect]
     Active Substance: PREDNISONE
     Indication: PRODUCT USED FOR UNKNOWN INDICATION
     Dosage: UNK
     Dates: end: 20160924
  3. NORTHERA [Suspect]
     Active Substance: DROXIDOPA
     Dosage: 400 MG, TID
     Dates: start: 20161018
  4. NORTHERA [Suspect]
     Active Substance: DROXIDOPA
     Indication: PRODUCT USED FOR UNKNOWN INDICATION
     Dosage: UNK UNK, SCHEDULE C AND TITRATING
     Dates: start: 20160920
  5. NORTHERA [Suspect]
     Active Substance: DROXIDOPA
     Dosage: 300 MG, TID
     Dates: start: 20161003

REACTIONS (4)
  - Abdominal distension [Unknown]
  - Somnolence [Not Recovered/Not Resolved]
  - Functional gastrointestinal disorder [Unknown]
  - Flatulence [Unknown]

NARRATIVE: CASE EVENT DATE: 201609
